FAERS Safety Report 26162745 (Version 1)
Quarter: 2025Q4

REPORT INFORMATION
  Report Type: Spontaneous
  Country: US (occurrence: None)
  Receive Date: 20251215
  Receipt Date: 20251215
  Transmission Date: 20260117
  Serious: Yes (Hospitalization)
  Sender: FDA-CTU
  Company Number: None

PATIENT
  Age: 69 Year
  Sex: Male

DRUGS (1)
  1. TAVNEOS [Suspect]
     Active Substance: AVACOPAN
     Dosage: FREQUENCY : TWICE A DAY;
     Route: 048

REACTIONS (5)
  - Withdrawal syndrome [None]
  - Product use issue [None]
  - Headache [None]
  - Neck pain [None]
  - Paraesthesia [None]

NARRATIVE: CASE EVENT DATE: 20251215
